FAERS Safety Report 6154416-6 (Version None)
Quarter: 2009Q2

REPORT INFORMATION
  Report Type: 
  Country: None (occurrence: None)
  Receive Date: 20090410
  Receipt Date: 20090410
  Transmission Date: 20091009
  Serious: Yes (Hospitalization)
  Sender: FDA-Public Use
  Company Number: None

PATIENT
  Sex: Female
  Weight: 55 kg

DRUGS (3)
  1. FLUOROURACIL [Suspect]
     Dosage: 3810 MG
     Dates: end: 20060809
  2. LEUCOVORIN CALCIUM [Suspect]
     Dosage: 635 MG
     Dates: end: 20060809
  3. ELOXATIN [Suspect]
     Dosage: 135 MG
     Dates: end: 20060717

REACTIONS (1)
  - PULMONARY EMBOLISM [None]
